FAERS Safety Report 13704858 (Version 1)
Quarter: 2017Q2

REPORT INFORMATION
  Report Type: Spontaneous
  Country: US (occurrence: US)
  Receive Date: 20170629
  Receipt Date: 20170629
  Transmission Date: 20170830
  Serious: No
  Sender: FDA-Public Use
  Company Number: None

PATIENT
  Age: 67 Year
  Sex: Female

DRUGS (1)
  1. RASUVO [Suspect]
     Active Substance: METHOTREXATE SODIUM
     Indication: PRODUCT USED FOR UNKNOWN INDICATION
     Route: 058
     Dates: start: 20161025, end: 20170607

REACTIONS (3)
  - Total lung capacity decreased [None]
  - Viral upper respiratory tract infection [None]
  - Bronchial wall thickening [None]

NARRATIVE: CASE EVENT DATE: 20161201
